FAERS Safety Report 7004630-2 (Version None)
Quarter: 2010Q3

REPORT INFORMATION
  Report Type: 
  Country: None (occurrence: None)
  Receive Date: 20100921
  Receipt Date: 20100908
  Transmission Date: 20110219
  Serious: Yes (Hospitalization)
  Sender: FDA-Public Use
  Company Number: SE-DENTSPLY-2010-0075-EUR

PATIENT
  Sex: Female

DRUGS (2)
  1. ORAQIX [Suspect]
     Route: 061
     Dates: start: 20091201, end: 20091201
  2. ATACAND PLUS TABLET [Concomitant]

REACTIONS (5)
  - FATIGUE [None]
  - MALAISE [None]
  - NAUSEA [None]
  - PALPITATIONS [None]
  - TACHYCARDIA [None]
